FAERS Safety Report 7652744-6 (Version None)
Quarter: 2011Q3

REPORT INFORMATION
  Report Type: 
  Country: None (occurrence: None)
  Receive Date: 20110803
  Receipt Date: 20110727
  Transmission Date: 20111222
  Serious: Yes (Other)
  Sender: FDA-Public Use
  Company Number: US-JNJFOC-20110700619

PATIENT
  Sex: Female

DRUGS (3)
  1. RISPERDAL CONSTA [Suspect]
     Indication: PRODUCT USED FOR UNKNOWN INDICATION
     Route: 030
  2. INVEGA SUSTENNA [Suspect]
     Indication: PRODUCT USED FOR UNKNOWN INDICATION
     Route: 030
  3. RISPERDAL [Suspect]
     Indication: SCHIZOPHRENIA
     Route: 048
     Dates: start: 19930101

REACTIONS (14)
  - HEADACHE [None]
  - CRYING [None]
  - FEAR [None]
  - CONVULSION [None]
  - MALAISE [None]
  - CYSTITIS [None]
  - STEREOTYPY [None]
  - BRAIN INJURY [None]
  - MIGRAINE [None]
  - ADVERSE EVENT [None]
  - DISORIENTATION [None]
  - PAIN [None]
  - EYE HAEMORRHAGE [None]
  - FUNGAL INFECTION [None]
